FAERS Safety Report 20207691 (Version 1)
Quarter: 2021Q4

REPORT INFORMATION
  Report Type: Spontaneous
  Country: US (occurrence: None)
  Receive Date: 20211220
  Receipt Date: 20211220
  Transmission Date: 20220303
  Serious: No
  Sender: FDA-Public Use
  Company Number: None

PATIENT
  Age: 39 Year
  Sex: Female
  Weight: 86.85 kg

DRUGS (1)
  1. WEGOVY [Suspect]
     Active Substance: SEMAGLUTIDE
     Indication: Weight decreased
     Dosage: OTHER QUANTITY : 1 INJECTION(S);?OTHER FREQUENCY : ONCE WEEKLY;?
     Route: 058
     Dates: start: 20210910, end: 20211212

REACTIONS (10)
  - Abdominal discomfort [None]
  - Nausea [None]
  - Vomiting [None]
  - Diarrhoea [None]
  - Gastrooesophageal reflux disease [None]
  - Eructation [None]
  - Abdominal discomfort [None]
  - Constipation [None]
  - Hypokalaemia [None]
  - Dehydration [None]

NARRATIVE: CASE EVENT DATE: 20211219
